FAERS Safety Report 6933491-2 (Version None)
Quarter: 2010Q3

REPORT INFORMATION
  Report Type: 
  Country: None (occurrence: None)
  Receive Date: 20100820
  Receipt Date: 20100730
  Transmission Date: 20110219
  Serious: Yes (Other)
  Sender: FDA-Public Use
  Company Number: ES-ABBOTT-10P-144-0664691-00

PATIENT
  Age: 79 Year
  Sex: Female

DRUGS (1)
  1. PANTOMICINA GRANULES [Suspect]
     Indication: PHARYNGITIS
     Route: 048
     Dates: start: 20100630

REACTIONS (4)
  - DEHYDRATION [None]
  - DIARRHOEA [None]
  - HYPOTENSION [None]
  - VOMITING [None]
